FAERS Safety Report 22288221 (Version 2)
Quarter: 2023Q2

REPORT INFORMATION
  Report Type: Report from Study
  Country: DE (occurrence: DE)
  Receive Date: 20230505
  Receipt Date: 20230606
  Transmission Date: 20230722
  Serious: Yes (Other)
  Sender: FDA-Public Use
  Company Number: DE-BAYER-2023A061968

PATIENT
  Age: 65 Year
  Sex: Female

DRUGS (1)
  1. BETAFERON [Suspect]
     Active Substance: INTERFERON BETA-1B
     Indication: Multiple sclerosis
     Dosage: 250 ?G, QOD
     Route: 058
     Dates: start: 2023

REACTIONS (1)
  - Injection site inflammation [Recovered/Resolved]

NARRATIVE: CASE EVENT DATE: 20230301
